FAERS Safety Report 22217466 (Version 1)
Quarter: 2023Q2

REPORT INFORMATION
  Report Type: Spontaneous
  Country: QA (occurrence: QA)
  Receive Date: 20230417
  Receipt Date: 20230417
  Transmission Date: 20230721
  Serious: Yes (Death, Hospitalization, Other)
  Sender: FDA-Public Use
  Company Number: QA-STERISCIENCE B.V.-2023-ST-001128

PATIENT
  Age: 19 Year
  Sex: Male

DRUGS (10)
  1. MEROPENEM [Suspect]
     Active Substance: MEROPENEM
     Indication: Neutropenia
     Dosage: UNK
     Route: 042
  2. VANCOMYCIN [Suspect]
     Active Substance: VANCOMYCIN
     Indication: Neutropenia
     Dosage: UNK
     Route: 042
  3. BLEOMYCIN [Suspect]
     Active Substance: BLEOMYCIN SULFATE
     Indication: Yolk sac tumour site unspecified
     Dosage: UNK
     Route: 065
  4. ETOPOSIDE [Suspect]
     Active Substance: ETOPOSIDE
     Indication: Yolk sac tumour site unspecified
     Dosage: 50% DOSE REDUCTION
     Route: 065
  5. CISPLATIN [Suspect]
     Active Substance: CISPLATIN
     Indication: Yolk sac tumour site unspecified
     Dosage: 25% DOSE REDUCTION
     Route: 065
  6. DEXAMETHASONE [Suspect]
     Active Substance: DEXAMETHASONE
     Indication: Yolk sac tumour site unspecified
     Dosage: 5 MILLIGRAM
     Route: 042
  7. RASBURICASE [Suspect]
     Active Substance: RASBURICASE
     Indication: Yolk sac tumour site unspecified
     Dosage: UNK
     Route: 042
  8. RASBURICASE [Suspect]
     Active Substance: RASBURICASE
     Indication: Prophylaxis
  9. ALLOPURINOL [Suspect]
     Active Substance: ALLOPURINOL
     Indication: Yolk sac tumour site unspecified
     Dosage: UNK
     Route: 065
  10. ALLOPURINOL [Suspect]
     Active Substance: ALLOPURINOL
     Indication: Prophylaxis

REACTIONS (1)
  - Drug ineffective for unapproved indication [Fatal]
